FAERS Safety Report 8312275-7 (Version None)
Quarter: 2012Q2

REPORT INFORMATION
  Report Type: 
  Country: None (occurrence: None)
  Receive Date: 20120425
  Receipt Date: 20120413
  Transmission Date: 20120825
  Serious: Yes (Other)
  Sender: FDA-Public Use
  Company Number: CA-ROCHE-1061859

PATIENT
  Sex: Female

DRUGS (1)
  1. XOLAIR [Suspect]
     Indication: ASTHMA
     Route: 058
     Dates: start: 20120413

REACTIONS (5)
  - PARAESTHESIA [None]
  - HYPERSENSITIVITY [None]
  - DIZZINESS [None]
  - BLOOD PRESSURE FLUCTUATION [None]
  - FEELING HOT [None]
